FAERS Safety Report 6644684-6 (Version None)
Quarter: 2010Q1

REPORT INFORMATION
  Report Type: 
  Country: None (occurrence: None)
  Receive Date: 20100322
  Receipt Date: 20100315
  Transmission Date: 20100710
  Serious: Yes (Hospitalization)
  Sender: FDA-Public Use
  Company Number: TR-TEVA-227934ISR

PATIENT
  Age: 5 Year
  Sex: Male
  Weight: 19.5 kg

DRUGS (3)
  1. CALCITRIOL [Suspect]
     Indication: ALAGILLE SYNDROME
  2. RETINOL [Suspect]
     Indication: ALAGILLE SYNDROME
  3. URSODEOXYCHOLIC ACID [Concomitant]

REACTIONS (1)
  - BENIGN INTRACRANIAL HYPERTENSION [None]
